FAERS Safety Report 4581067-7 (Version None)
Quarter: 2005Q1

REPORT INFORMATION
  Report Type: 
  Country: None (occurrence: None)
  Receive Date: 20050214
  Receipt Date: 20040728
  Transmission Date: 20050727
  Serious: No
  Sender: FDA-Public Use
  Company Number: US-GLAXOSMITHKLINE-A0520104A

PATIENT
  Age: 49 Year
  Sex: Female
  Weight: 81.8 kg

DRUGS (4)
  1. LAMICTAL [Suspect]
     Indication: BIPOLAR DISORDER
     Dosage: 50MG PER DAY
     Route: 048
  2. CELEXA [Concomitant]
  3. DEPAKOTE [Concomitant]
  4. ESKALITH [Concomitant]

REACTIONS (1)
  - BLISTER [None]
